FAERS Safety Report 5599592-9 (Version None)
Quarter: 2008Q1

REPORT INFORMATION
  Report Type: 
  Country: None (occurrence: None)
  Receive Date: 20080123
  Receipt Date: 20080114
  Transmission Date: 20080703
  Serious: Yes (Hospitalization)
  Sender: FDA-Public Use
  Company Number: PHRM2008FR00586

PATIENT
  Age: 70 Year
  Sex: Female

DRUGS (9)
  1. TAREG [Suspect]
     Dosage: 160 MG/DAY
     Route: 048
  2. TERALITHE [Suspect]
     Indication: MENTAL DISORDER
     Dosage: 800 MG/DAY
     Route: 048
     Dates: end: 20070927
  3. FUROSEMIDE [Suspect]
     Dosage: 20 MG/DAY
     Route: 048
     Dates: end: 20071002
  4. IMOVANE [Concomitant]
  5. PAROXETINE [Concomitant]
     Dosage: 1 DF/DAY
  6. PAROXETINE [Concomitant]
     Dosage: 2 DF/DAY
  7. TEMERIT [Concomitant]
     Dosage: 5 MG/DAY
  8. ETIOVEN [Concomitant]
  9. TROSPIUM [Concomitant]
     Dosage: 40 MG/DAY

REACTIONS (4)
  - ANTIPSYCHOTIC DRUG LEVEL INCREASED [None]
  - NEUROLOGICAL SYMPTOM [None]
  - PSYCHOMOTOR SKILLS IMPAIRED [None]
  - TREMOR [None]
